FAERS Safety Report 7905255-4 (Version None)
Quarter: 2011Q4

REPORT INFORMATION
  Report Type: 
  Country: None (occurrence: None)
  Receive Date: 20111109
  Receipt Date: 20111108
  Transmission Date: 20120403
  Serious: Yes (Death)
  Sender: FDA-Public Use
  Company Number: BR-PFIZER INC-2011273937

PATIENT
  Age: 82 Year
  Sex: Male

DRUGS (3)
  1. ALPRAZOLAM [Suspect]
     Dosage: 1 MG, UNK
     Route: 048
  2. ATORVASTATIN [Concomitant]
     Dosage: UNK
     Dates: start: 19930101
  3. LASIX [Concomitant]

REACTIONS (1)
  - INFARCTION [None]
